FAERS Safety Report 12492679 (Version 2)
Quarter: 2016Q3

REPORT INFORMATION
  Report Type: Spontaneous
  Country: JP (occurrence: JP)
  Receive Date: 20160623
  Receipt Date: 20160803
  Transmission Date: 20161109
  Serious: Yes (Other)
  Sender: FDA-Public Use
  Company Number: JP-GLAXOSMITHKLINE-JP2016JPN088084

PATIENT
  Age: 79 Year
  Sex: Female

DRUGS (4)
  1. VALACICLOVIR [Suspect]
     Active Substance: VALACYCLOVIR HYDROCHLORIDE
     Indication: HERPES ZOSTER
     Dosage: 2000 MG, 1D
     Route: 048
  2. METFORMIN HYDROCHLORIDE. [Concomitant]
     Active Substance: METFORMIN HYDROCHLORIDE
     Dosage: 1500 MG, 1D
  3. GLIMEPIRIDE. [Concomitant]
     Active Substance: GLIMEPIRIDE
     Dosage: 0.5 MG, 1D
  4. SITAGLIPTIN PHOSPHATE HYDRATE [Concomitant]
     Dosage: 100 MG, 1D

REACTIONS (4)
  - Acute kidney injury [Recovering/Resolving]
  - Hyperkalaemia [Unknown]
  - Hypophagia [Unknown]
  - Mobility decreased [Unknown]
